FAERS Safety Report 6071352-4 (Version None)
Quarter: 2009Q1

REPORT INFORMATION
  Report Type: 
  Country: None (occurrence: None)
  Receive Date: 20090204
  Receipt Date: 20090203
  Transmission Date: 20090719
  Serious: Yes (Other)
  Sender: FDA-Public Use
  Company Number: 040724

PATIENT
  Age: 34 Year
  Sex: Female

DRUGS (1)
  1. NALBUPHINE HYDROCHLORIDE [Suspect]
     Dosage: 10 MG,

REACTIONS (3)
  - DRUG ABUSER [None]
  - OVERDOSE [None]
  - UNRESPONSIVE TO STIMULI [None]
